FAERS Safety Report 7364806-1 (Version None)
Quarter: 2011Q1

REPORT INFORMATION
  Report Type: 
  Country: None (occurrence: None)
  Receive Date: 20110321
  Receipt Date: 20110315
  Transmission Date: 20110831
  Serious: Yes (Other)
  Sender: FDA-Public Use
  Company Number: FR-PFIZER INC-2011057290

PATIENT
  Age: 40 Year
  Sex: Male

DRUGS (1)
  1. RHINADVIL [Suspect]
     Indication: SINUSITIS
     Dosage: UNK

REACTIONS (2)
  - GENITAL DISORDER MALE [None]
  - BENIGN PROSTATIC HYPERPLASIA [None]
